FAERS Safety Report 6454658-6 (Version None)
Quarter: 2009Q4

REPORT INFORMATION
  Report Type: 
  Country: None (occurrence: None)
  Receive Date: 20091118
  Receipt Date: 20091103
  Transmission Date: 20100525
  Serious: Yes (Other)
  Sender: FDA-Public Use
  Company Number: 1-20626766

PATIENT
  Age: 20 Year
  Sex: Female

DRUGS (2)
  1. WARFARIN SODIUM [Suspect]
     Indication: PULMONARY EMBOLISM
     Dosage: ORAL; SEVERAL MONTHS
     Route: 048
  2. ACETAMINOPHEN W/ CODEINE TAB [Concomitant]

REACTIONS (9)
  - BLISTER [None]
  - ESCHAR [None]
  - FIBULA FRACTURE [None]
  - HAEMORRHAGE [None]
  - NECROSIS [None]
  - OEDEMA PERIPHERAL [None]
  - PROCEDURAL PAIN [None]
  - SKIN ULCER [None]
  - TIBIA FRACTURE [None]
